FAERS Safety Report 23429565 (Version 1)
Quarter: 2024Q1

REPORT INFORMATION
  Report Type: Spontaneous
  Country: AU (occurrence: AU)
  Receive Date: 20240122
  Receipt Date: 20240122
  Transmission Date: 20240409
  Serious: Yes (Other)
  Sender: FDA-Public Use
  Company Number: AU-BAUSCHBL-2024BNL000628

PATIENT
  Age: 66 Year
  Sex: Male

DRUGS (12)
  1. DEXAMETHASONE [Suspect]
     Active Substance: DEXAMETHASONE
     Indication: Pulmonary thrombosis
     Dosage: HIGH DOSES
     Route: 065
     Dates: start: 202007
  2. DEXAMETHASONE [Suspect]
     Active Substance: DEXAMETHASONE
     Indication: Hypoglycaemia
  3. DIAZOXIDE [Suspect]
     Active Substance: DIAZOXIDE
     Indication: Hypoglycaemia
     Route: 065
     Dates: start: 202007, end: 202008
  4. DEXTROSE [Concomitant]
     Active Substance: DEXTROSE\DEXTROSE MONOHYDRATE
     Indication: Hypoglycaemia
     Dosage: CONTINUOUS INTRAVENOUS 5% DEXTROSE
     Route: 042
     Dates: start: 202007
  5. ENOXAPARIN [Concomitant]
     Active Substance: ENOXAPARIN
     Indication: Pulmonary thrombosis
     Dates: start: 202007
  6. TEMOZOLOMIDE [Concomitant]
     Active Substance: TEMOZOLOMIDE
     Indication: Carcinoid tumour
     Dosage: FIRST-LINE PALLIATIVE CHEMOTHERAPY
     Dates: start: 201911, end: 202008
  7. TEMOZOLOMIDE [Concomitant]
     Active Substance: TEMOZOLOMIDE
     Indication: Thymic carcinoma
  8. TEMOZOLOMIDE [Concomitant]
     Active Substance: TEMOZOLOMIDE
     Indication: Disease progression
  9. CAPECITABINE [Concomitant]
     Active Substance: CAPECITABINE
     Indication: Carcinoid tumour
     Dosage: FIRST-LINE PALLIATIVE CHEMOTHERAPY
     Dates: start: 201911, end: 202008
  10. CAPECITABINE [Concomitant]
     Active Substance: CAPECITABINE
     Indication: Thymic carcinoma
  11. CAPECITABINE [Concomitant]
     Active Substance: CAPECITABINE
     Indication: Disease progression
  12. DEXTROSE [Concomitant]
     Active Substance: DEXTROSE\DEXTROSE MONOHYDRATE
     Indication: Hypoglycaemia
     Dosage: BOLUSES OF 50% DEXTROSE
     Dates: start: 202007

REACTIONS (2)
  - Oedema peripheral [Unknown]
  - Therapy non-responder [Unknown]

NARRATIVE: CASE EVENT DATE: 20200701
